FAERS Safety Report 5359330-1 (Version None)
Quarter: 2007Q2

REPORT INFORMATION
  Report Type: 
  Country: None (occurrence: None)
  Receive Date: 20070615
  Receipt Date: 20070612
  Transmission Date: 20071010
  Serious: Yes (Other)
  Sender: FDA-Public Use
  Company Number: US-BOEHRINGER INGELHEIM PHARMACEUTICALS, INC.-2007-BP-06594BP

PATIENT
  Sex: Female

DRUGS (3)
  1. SPIRIVA [Suspect]
     Indication: LUNG DISORDER
     Route: 055
     Dates: start: 20060101
  2. OXYGEN [Concomitant]
  3. FORADIL [Concomitant]

REACTIONS (10)
  - BRONCHIAL OBSTRUCTION [None]
  - COUGH [None]
  - DRUG INEFFECTIVE [None]
  - DYSPNOEA [None]
  - LUNG DISORDER [None]
  - NASAL CONGESTION [None]
  - PULMONARY CONGESTION [None]
  - RESPIRATORY DISTRESS [None]
  - TOTAL LUNG CAPACITY DECREASED [None]
  - VIRAL INFECTION [None]
